FAERS Safety Report 5192924-5 (Version None)
Quarter: 2006Q4

REPORT INFORMATION
  Report Type: 
  Country: None (occurrence: None)
  Receive Date: 20061228
  Receipt Date: 20060222
  Transmission Date: 20070319
  Serious: No
  Sender: FDA-Public Use
  Company Number: US-GLAXOSMITHKLINE-A0594794A

PATIENT
  Age: 47 Year
  Sex: Male

DRUGS (3)
  1. FLONASE [Suspect]
     Dosage: 1SPR PER DAY
     Route: 045
     Dates: start: 20040101
  2. SEREVENT [Concomitant]
  3. FLOVENT [Concomitant]

REACTIONS (6)
  - ABDOMINAL PAIN UPPER [None]
  - BLOOD ALCOHOL INCREASED [None]
  - BLOOD ETHANOL INCREASED [None]
  - DIARRHOEA [None]
  - IMPAIRED DRIVING ABILITY [None]
  - MUSCLE SPASMS [None]
